FAERS Safety Report 5356510-6 (Version None)
Quarter: 2007Q2

REPORT INFORMATION
  Report Type: 
  Country: None (occurrence: None)
  Receive Date: 20070530
  Receipt Date: 20061110
  Transmission Date: 20071010
  Serious: Yes (Hospitalization)
  Sender: FDA-Public Use
  Company Number: US200608006093

PATIENT
  Age: 58 Year
  Sex: Male
  Weight: 92.5 kg

DRUGS (3)
  1. ZYPREXA [Suspect]
     Dosage: 5 MG
     Dates: start: 20040210, end: 20040318
  2. DIVALPROEX SODIUM [Concomitant]
  3. ZOLOFT [Concomitant]

REACTIONS (2)
  - DIABETES MELLITUS [None]
  - LOSS OF CONSCIOUSNESS [None]
